FAERS Safety Report 5892831-6 (Version None)
Quarter: 2008Q3

REPORT INFORMATION
  Report Type: 
  Country: None (occurrence: None)
  Receive Date: 20080923
  Receipt Date: 20080529
  Transmission Date: 20090109
  Serious: No
  Sender: FDA-Public Use
  Company Number: US-BAYER-200824672NA

PATIENT
  Age: 62 Year
  Sex: Female

DRUGS (2)
  1. CLIMARA [Suspect]
     Indication: DRUG USE FOR UNKNOWN INDICATION
     Route: 062
     Dates: start: 20080528
  2. ANOTHER PILL [Concomitant]
     Indication: HEADACHE

REACTIONS (1)
  - HEADACHE [None]
